FAERS Safety Report 6781733-9 (Version None)
Quarter: 2010Q2

REPORT INFORMATION
  Report Type: 
  Country: None (occurrence: None)
  Receive Date: 20100621
  Receipt Date: 20100614
  Transmission Date: 20101027
  Serious: Yes (Death, Hospitalization, Other)
  Sender: FDA-Public Use
  Company Number: TR-ROXANE LABORATORIES, INC.-2010-RO-00714RO

PATIENT
  Age: 28 Year
  Sex: Female

DRUGS (20)
  1. SERTRALINE HCL [Suspect]
     Indication: DEPRESSION
     Dosage: 25 MG
  2. SERTRALINE HCL [Suspect]
     Dosage: 50 MG
     Dates: start: 20080309
  3. ALPRAZOLAM [Suspect]
     Indication: ANXIETY
     Dosage: 2.25 MG
  4. ALPRAZOLAM [Suspect]
     Indication: SEROTONIN SYNDROME
     Dosage: 2.25 MG
  5. MEPERIDINE HCL [Suspect]
  6. MIDAZOLAM HCL [Suspect]
  7. TIENEM [Suspect]
     Indication: ENTEROCOCCAL INFECTION
     Dates: start: 20080227, end: 20080304
  8. AMOXICILLIN AND CLAVULANATE POTASSIUM [Suspect]
     Indication: ENTEROCOCCAL INFECTION
     Dates: start: 20080227, end: 20080304
  9. LINEZOLID [Suspect]
     Indication: ENTEROCOCCAL INFECTION
     Dosage: 2400 MG
     Dates: start: 20080304
  10. TRAMADOL [Suspect]
  11. METOCLOPRAMIDE [Suspect]
  12. DICLOFENAC SODIUM [Suspect]
  13. IMIPENEM [Suspect]
  14. AMIKASIN [Suspect]
  15. CASPOFUNGIN ACETATE [Suspect]
  16. SANDOSTATIN [Suspect]
  17. RANITIDINE [Suspect]
  18. PHENIRAMINE [Suspect]
  19. QUETIAPINE [Suspect]
     Indication: DELIRIUM
     Dosage: 25 MG
  20. QUETIAPINE [Suspect]
     Indication: PSYCHOTIC DISORDER

REACTIONS (4)
  - DELIRIUM [None]
  - DISEASE COMPLICATION [None]
  - SEPSIS [None]
  - SEROTONIN SYNDROME [None]
